FAERS Safety Report 6892182-7 (Version None)
Quarter: 2010Q3

REPORT INFORMATION
  Report Type: 
  Country: None (occurrence: None)
  Receive Date: 20100731
  Receipt Date: 20080207
  Transmission Date: 20110219
  Serious: No
  Sender: FDA-Public Use
  Company Number: US-PFIZER INC-2007097970

PATIENT
  Sex: Male
  Weight: 83.91 kg

DRUGS (7)
  1. NEURONTIN [Suspect]
     Indication: BACK PAIN
  2. LYRICA [Suspect]
     Indication: PAIN
     Route: 048
     Dates: start: 20071002, end: 20071002
  3. METHADONE HCL [Concomitant]
  4. EFFEXOR [Concomitant]
  5. LISINOPRIL [Concomitant]
  6. ATENOLOL [Concomitant]
  7. PRAVACHOL [Concomitant]

REACTIONS (1)
  - HEADACHE [None]
